FAERS Safety Report 23244138 (Version 1)
Quarter: 2023Q4

REPORT INFORMATION
  Report Type: Spontaneous
  Country: US (occurrence: US)
  Receive Date: 20231130
  Receipt Date: 20231130
  Transmission Date: 20240110
  Serious: Yes (Hospitalization)
  Sender: FDA-Public Use
  Company Number: US-STRIDES ARCOLAB LIMITED-2023SP014301

PATIENT
  Age: 39 Year
  Sex: Female

DRUGS (29)
  1. PREDNISOLONE [Suspect]
     Active Substance: PREDNISOLONE
     Indication: B-cell type acute leukaemia
     Dosage: 100 MILLIGRAM, AS A PART OF CALGB 10403 REGIMEN
     Route: 048
     Dates: start: 201912
  2. PREDNISOLONE [Suspect]
     Active Substance: PREDNISOLONE
     Indication: Philadelphia chromosome negative
  3. HYDROCORTISONE [Suspect]
     Active Substance: HYDROCORTISONE
     Indication: Premedication
     Dosage: UNK
     Route: 065
     Dates: start: 2020
  4. MORPHINE SULFATE [Suspect]
     Active Substance: MORPHINE SULFATE
     Indication: Cytokine release syndrome
     Dosage: UNK
     Route: 065
     Dates: start: 2020
  5. VINCRISTINE [Suspect]
     Active Substance: VINCRISTINE
     Indication: B-cell type acute leukaemia
     Dosage: 1.5 MILLIGRAM/SQ. METER, ON DAYS 1, 8, 15 AND 22 (MAXIMUM DOSE OF 2 MG) AS A PART OF CALGB 10403 REG
     Route: 042
     Dates: start: 201912
  6. VINCRISTINE [Suspect]
     Active Substance: VINCRISTINE
     Indication: Philadelphia chromosome negative
  7. DAUNORUBICIN [Suspect]
     Active Substance: DAUNORUBICIN
     Indication: B-cell type acute leukaemia
     Dosage: 25 MILLIGRAM/SQ. METER, ON DAYS 1, 8, 15 AND 22, AS A PART OF CALGB 10403 REGIMEN
     Route: 042
     Dates: start: 201912
  8. DAUNORUBICIN [Suspect]
     Active Substance: DAUNORUBICIN
     Indication: Philadelphia chromosome negative
  9. PEGASPARGASE [Suspect]
     Active Substance: PEGASPARGASE
     Indication: B-cell type acute leukaemia
     Dosage: UNK, 2500 IU/M2 ON DAYS 1-28 (MAXIMUM DOSE OF 3750IU), AS A PART OF CALGB 10403 REGIMEN
     Route: 042
     Dates: start: 201912
  10. PEGASPARGASE [Suspect]
     Active Substance: PEGASPARGASE
     Indication: Philadelphia chromosome negative
  11. BLINATUMOMAB [Suspect]
     Active Substance: BLINATUMOMAB
     Indication: B-cell type acute leukaemia
     Dosage: 9 MICROGRAM, CONTINUES IV INFUSION OF BLINATUMOMAB 9MICROG OVER 24 H ON DAY 1
     Route: 042
     Dates: start: 2020, end: 2020
  12. BLINATUMOMAB [Suspect]
     Active Substance: BLINATUMOMAB
     Indication: Philadelphia chromosome negative
     Dosage: 18 MICROGRAM, CONTINUES IV INFUSION OF BLINATUMOMAB 18MICROG ON DAYS 2-3, 4-5 AND 6-7
     Route: 042
     Dates: start: 2020, end: 2020
  13. BLINATUMOMAB [Suspect]
     Active Substance: BLINATUMOMAB
     Dosage: UNK
     Route: 065
     Dates: start: 2020, end: 2020
  14. BLINATUMOMAB [Suspect]
     Active Substance: BLINATUMOMAB
     Dosage: 9 MICROGRAM/DAY (DAILY), CONTINUES IV INFUSION RESTARTED AT A DOSE OF 9MICROG DAILY ON DAYS 1-7
     Route: 042
     Dates: start: 2020, end: 2020
  15. BLINATUMOMAB [Suspect]
     Active Substance: BLINATUMOMAB
     Dosage: 28 MICROGRAM/DAY (DAILY), CONTINUES IV INFUSION ON DAYS 8-9
     Route: 042
     Dates: start: 2020, end: 2020
  16. BLINATUMOMAB [Suspect]
     Active Substance: BLINATUMOMAB
     Dosage: 28 MICROGRAM, DAILY, CONTINUES IV INFUSION DAILY ON DAYS 10 TO 28 OF A SIX WEEK CYCLE
     Route: 042
     Dates: start: 2020
  17. DIPHENHYDRAMINE [Suspect]
     Active Substance: DIPHENHYDRAMINE
     Indication: Premedication
     Dosage: UNK
     Route: 065
     Dates: start: 2020
  18. ACETAMINOPHEN [Suspect]
     Active Substance: ACETAMINOPHEN
     Indication: Premedication
     Dosage: UNK
     Route: 065
     Dates: start: 2020
  19. COTRIMOXAZOLE [Concomitant]
     Active Substance: SULFAMETHOXAZOLE\TRIMETHOPRIM
     Indication: Infection prophylaxis
     Dosage: UNK, 800 MG/160 MG EVERY MONDAY, WEDNESDAY, FRIDAY
     Route: 065
     Dates: start: 201912, end: 2020
  20. FLUCONAZOLE [Concomitant]
     Active Substance: FLUCONAZOLE
     Indication: Infection prophylaxis
     Dosage: 400 MILLIGRAM/DAY
     Route: 065
     Dates: start: 201912
  21. ACYCLOVIR [Concomitant]
     Active Substance: ACYCLOVIR
     Indication: Infection prophylaxis
     Dosage: 400 MILLIGRAM, BID
     Route: 065
     Dates: start: 201912
  22. ALLOPURINOL [Concomitant]
     Active Substance: ALLOPURINOL
     Indication: Infection prophylaxis
     Dosage: 100 MILLIGRAM PER DAY
     Route: 065
     Dates: start: 201912
  23. ENOXAPARIN [Concomitant]
     Active Substance: ENOXAPARIN
     Indication: Infection prophylaxis
     Dosage: 40 MILLIGRAM/DAY
     Route: 058
     Dates: start: 201912
  24. PANTOPRAZOLE [Concomitant]
     Active Substance: PANTOPRAZOLE
     Indication: Infection prophylaxis
     Dosage: 40 MILLIGRAM/DAY
     Route: 065
     Dates: start: 201912
  25. METHOTREXATE [Concomitant]
     Active Substance: METHOTREXATE
     Indication: Prophylaxis
     Dosage: UNK
     Route: 065
     Dates: start: 201912
  26. CYTARABINE [Concomitant]
     Active Substance: CYTARABINE
     Indication: Prophylaxis
     Dosage: UNK
     Route: 065
     Dates: start: 201912
  27. URSODIOL [Concomitant]
     Active Substance: URSODIOL
     Indication: Hepatobiliary disorder prophylaxis
     Dosage: 300 MILLIGRAM/DAY
     Route: 048
     Dates: start: 2020
  28. ONDANSETRON [Concomitant]
     Active Substance: ONDANSETRON
     Indication: Vomiting
     Dosage: UNK
     Route: 065
     Dates: start: 2020
  29. ONDANSETRON [Concomitant]
     Active Substance: ONDANSETRON
     Indication: Nausea

REACTIONS (3)
  - Treatment failure [Unknown]
  - Drug ineffective [Unknown]
  - Off label use [Unknown]

NARRATIVE: CASE EVENT DATE: 20200101
